FAERS Safety Report 23640158 (Version 4)
Quarter: 2024Q2

REPORT INFORMATION
  Report Type: Spontaneous
  Country: TW (occurrence: TW)
  Receive Date: 20240317
  Receipt Date: 20240606
  Transmission Date: 20240715
  Serious: Yes (Hospitalization)
  Sender: FDA-Public Use
  Company Number: TW-Accord-411595

PATIENT
  Age: 59 Year
  Sex: Male
  Weight: 49.3 kg

DRUGS (34)
  1. CISPLATIN [Suspect]
     Active Substance: CISPLATIN
     Indication: Squamous cell carcinoma of head and neck
     Dosage: 1Q3W
     Route: 042
     Dates: start: 20231012, end: 20231102
  2. FLUOROURACIL [Suspect]
     Active Substance: FLUOROURACIL
     Indication: Squamous cell carcinoma of head and neck
     Dosage: QD
     Route: 042
     Dates: start: 20231012, end: 20231017
  3. PEMBROLIZUMAB [Concomitant]
     Active Substance: PEMBROLIZUMAB
     Indication: Squamous cell carcinoma of head and neck
     Dosage: 1Q3W
     Route: 042
     Dates: start: 20231012, end: 20240216
  4. PARACETAMOL W/TRAMADOL HYDROCHLORID [Concomitant]
     Dates: start: 20230814
  5. ACETAMINOPHEN [Concomitant]
     Active Substance: ACETAMINOPHEN
     Dates: start: 20240215, end: 20240222
  6. PARACETAMOL W/TRAMADOL HYDROCHLORID [Concomitant]
     Dates: start: 20240110, end: 20240219
  7. DIMETHICONE [Concomitant]
     Active Substance: DIMETHICONE
     Dates: start: 20231228, end: 20240126
  8. ACETYLCYSTEINE [Concomitant]
     Active Substance: ACETYLCYSTEINE
     Dates: start: 20240215
  9. IMOVANE [Concomitant]
     Active Substance: ZOPICLONE
     Dates: start: 20231127, end: 20240229
  10. SILODOSIN [Concomitant]
     Active Substance: SILODOSIN
     Dates: start: 20231127, end: 20240126
  11. FENTANYL [Concomitant]
     Active Substance: FENTANYL\FENTANYL CITRATE
     Dates: start: 20230907, end: 20240126
  12. CHLORPHENIRAMINE [Concomitant]
     Active Substance: CHLORPHENIRAMINE
     Dates: start: 20240215, end: 20240222
  13. LEVOTHYROXINE [Concomitant]
     Active Substance: LEVOTHYROXINE\LEVOTHYROXINE SODIUM
     Dates: start: 20231211, end: 20240228
  14. FENTANYL CITRATE [Concomitant]
     Active Substance: FENTANYL CITRATE
     Dates: start: 20240215, end: 20240229
  15. NETUPITANT\PALONOSETRON HYDROCHLORIDE [Concomitant]
     Active Substance: NETUPITANT\PALONOSETRON HYDROCHLORIDE
     Dates: start: 20240216, end: 20240216
  16. LASIX [Concomitant]
     Active Substance: FUROSEMIDE
     Dates: start: 20240216, end: 20240216
  17. MORPHINE SULFATE [Concomitant]
     Active Substance: MORPHINE SULFATE
     Dates: start: 20240217, end: 20240219
  18. NOREPINEPHRINE [Concomitant]
     Active Substance: NOREPINEPHRINE\NOREPINEPHRINE BITARTRATE
     Dates: start: 20240219, end: 20240222
  19. PLASBUMIN [Concomitant]
     Active Substance: ALBUMIN HUMAN
     Dates: start: 20240218, end: 20240218
  20. MEROPENEM [Concomitant]
     Active Substance: MEROPENEM
     Dates: start: 20240218, end: 20240222
  21. TEICOPLANIN [Concomitant]
     Active Substance: TEICOPLANIN
     Dates: start: 20240218, end: 20240219
  22. ASA W/CAFFEINE/CHLORPHENAMINE/PHENY [Concomitant]
     Dates: start: 20240219, end: 20240225
  23. TARGOCID [Concomitant]
     Active Substance: TEICOPLANIN
     Dates: start: 20240220, end: 20240222
  24. SODIUM CHLORIDE [Concomitant]
     Active Substance: SODIUM CHLORIDE
     Dates: start: 20240221, end: 20240228
  25. MAGNESIUM SULFATE [Concomitant]
     Active Substance: MAGNESIUM SULFATE\MAGNESIUM SULFATE HEPTAHYDRATE
     Dates: start: 20240217, end: 20240224
  26. SODIUM CHLORIDE [Concomitant]
     Active Substance: SODIUM CHLORIDE
     Dates: start: 20240218, end: 20240222
  27. DEXTROSE [Concomitant]
     Active Substance: DEXTROSE\DEXTROSE MONOHYDRATE
     Dates: start: 20240219, end: 20240222
  28. ACTEIN [Concomitant]
     Dates: start: 20231127, end: 20240126
  29. CISPLATIN [Suspect]
     Active Substance: CISPLATIN
     Indication: Squamous cell carcinoma of head and neck
     Dosage: 1Q3W
     Route: 042
     Dates: start: 20231128, end: 20240216
  30. FLUOROURACIL [Suspect]
     Active Substance: FLUOROURACIL
     Indication: Squamous cell carcinoma of head and neck
     Dosage: QD
     Route: 042
     Dates: start: 20231102, end: 20231106
  31. FLUOROURACIL [Suspect]
     Active Substance: FLUOROURACIL
     Indication: Squamous cell carcinoma of head and neck
     Dosage: QD
     Route: 042
     Dates: start: 20231128, end: 20231202
  32. FLUOROURACIL [Suspect]
     Active Substance: FLUOROURACIL
     Indication: Squamous cell carcinoma of head and neck
     Dosage: QD
     Route: 042
     Dates: start: 20231220, end: 20231224
  33. FLUOROURACIL [Suspect]
     Active Substance: FLUOROURACIL
     Indication: Squamous cell carcinoma of head and neck
     Dosage: QD
     Route: 042
     Dates: start: 20240109, end: 20240113
  34. FLUOROURACIL [Suspect]
     Active Substance: FLUOROURACIL
     Indication: Squamous cell carcinoma of head and neck
     Dosage: QD
     Route: 042
     Dates: start: 20240216, end: 20240218

REACTIONS (1)
  - Haemodynamic instability [Recovered/Resolved]

NARRATIVE: CASE EVENT DATE: 20240217
